FAERS Safety Report 8708125 (Version 2)
Quarter: 2012Q4

REPORT INFORMATION
  Report Type: Report from Study
  Country: CA (occurrence: CA)
  Receive Date: 20120806
  Receipt Date: 20121009
  Transmission Date: 20130627
  Serious: Yes (Hospitalization)
  Sender: FDA-Public Use
  Company Number: CA-JNJFOC-20120713816

PATIENT
  Age: 67 Year
  Sex: Male

DRUGS (7)
  1. REMICADE [Suspect]
     Indication: PRODUCT USED FOR UNKNOWN INDICATION
     Route: 042
     Dates: start: 20070214
  2. FOLIC ACID [Concomitant]
     Route: 048
     Dates: start: 2005
  3. METHOTREXATE [Concomitant]
     Indication: PSORIATIC ARTHROPATHY
     Route: 058
     Dates: start: 20050501
  4. LYRICA [Concomitant]
     Indication: ARTHRALGIA
     Route: 048
     Dates: start: 20090810
  5. TRADOL [Concomitant]
     Indication: ARTHRALGIA
     Route: 048
     Dates: start: 20120611
  6. EZETROL [Concomitant]
     Indication: BLOOD CHOLESTEROL
     Route: 048
     Dates: start: 20120620
  7. AAS [Concomitant]
     Route: 048
     Dates: start: 20120620

REACTIONS (1)
  - Carotid artery stenosis [Recovered/Resolved]
